FAERS Safety Report 11527581 (Version 1)
Quarter: 2015Q3

REPORT INFORMATION
  Report Type: Spontaneous
  Country: US (occurrence: US)
  Receive Date: 20150903
  Receipt Date: 20150903
  Transmission Date: 20151125
  Serious: No
  Sender: FDA-Public Use
  Company Number: US-ELI_LILLY_AND_COMPANY-US200905004456

PATIENT
  Sex: Male

DRUGS (7)
  1. DYNACIRC [Concomitant]
     Active Substance: ISRADIPINE
  2. LEVEMIR [Concomitant]
     Active Substance: INSULIN DETEMIR
  3. LYRICA [Concomitant]
     Active Substance: PREGABALIN
  4. HYZAAR [Concomitant]
     Active Substance: HYDROCHLOROTHIAZIDE\LOSARTAN POTASSIUM
  5. CRESTOR [Concomitant]
     Active Substance: ROSUVASTATIN CALCIUM
  6. METFORMIN [Concomitant]
     Active Substance: METFORMIN HYDROCHLORIDE
  7. HUMALOG [Suspect]
     Active Substance: INSULIN LISPRO

REACTIONS (1)
  - Incorrect drug dosage form administered [Unknown]

NARRATIVE: CASE EVENT DATE: 200812
